FAERS Safety Report 5203708-3 (Version None)
Quarter: 2007Q1

REPORT INFORMATION
  Report Type: 
  Country: None (occurrence: None)
  Receive Date: 20070109
  Receipt Date: 20070109
  Transmission Date: 20070707
  Serious: Yes (Life-Threatening, Other)
  Sender: FDA-Public Use
  Company Number: None

PATIENT

DRUGS (3)
  1. EPINEPHRINE [Suspect]
     Indication: ANAESTHESIA
     Dosage: 1 CC ONCE SQ
     Route: 058
  2. EPINEPHRINE [Suspect]
     Indication: HAEMORRHAGE CONTROL
     Dosage: 1 CC ONCE SQ
     Route: 058
  3. EPINEPHRINE [Suspect]
     Indication: INTRAOPERATIVE CARE
     Dosage: 1 CC ONCE SQ
     Route: 058

REACTIONS (2)
  - CIRCUMSTANCE OR INFORMATION CAPABLE OF LEADING TO MEDICATION ERROR [None]
  - MEDICATION ERROR [None]
